FAERS Safety Report 6692311 (Version 2)
Quarter: 2022Q1

REPORT INFORMATION
  Report Type: Report from Study
  Country: US (occurrence: US)
  Receive Date: 20080707
  Receipt Date: 20220119
  Transmission Date: 20220423
  Serious: Yes (Hospitalization)
  Sender: FDA-Public Use
  Company Number: US-PFIZER INC-2008052892

PATIENT
  Age: 57 Year
  Sex: Male
  Weight: 53.9 kg

DRUGS (1)
  1. SUTENT [Suspect]
     Active Substance: SUNITINIB MALATE
     Indication: Papillary thyroid cancer
     Dosage: 50 MG, DAILY FOR 4 WEEKS
     Route: 048
     Dates: start: 20071228

REACTIONS (6)
  - Pneumonitis [Unknown]
  - Hypotension [Unknown]
  - Pyrexia [Unknown]
  - Dehydration [Unknown]
  - Dental caries [Unknown]
  - Toothache [Unknown]

NARRATIVE: CASE EVENT DATE: 20080612
